FAERS Safety Report 4593044-0 (Version None)
Quarter: 2005Q1

REPORT INFORMATION
  Report Type: 
  Country: None (occurrence: None)
  Receive Date: 20050301
  Receipt Date: 20050217
  Transmission Date: 20050727
  Serious: Yes (Other)
  Sender: FDA-Public Use
  Company Number: US-JNJFOC-20050205383

PATIENT
  Sex: Male
  Weight: 68.49 kg

DRUGS (3)
  1. REMICADE [Suspect]
     Route: 042
  2. CIPROFLOXACIN [Concomitant]
     Route: 049
  3. SULFASALAZINE [Concomitant]
     Route: 049

REACTIONS (5)
  - ABDOMINAL DISTENSION [None]
  - ABDOMINAL PAIN [None]
  - ERECTILE DYSFUNCTION [None]
  - HAEMATOCHEZIA [None]
  - LIPOMA [None]
